FAERS Safety Report 18636999 (Version 3)
Quarter: 2021Q1

REPORT INFORMATION
  Report Type: Spontaneous
  Country: US (occurrence: US)
  Receive Date: 20201219
  Receipt Date: 20210213
  Transmission Date: 20210419
  Serious: No
  Sender: FDA-Public Use
  Company Number: US-009507513-2012USA004994

PATIENT
  Age: 19 Year
  Sex: Female

DRUGS (1)
  1. NEXPLANON [Suspect]
     Active Substance: ETONOGESTREL
     Dosage: IMPLANTED ROD, ONCE, LEFT UPPER ARM
     Route: 059
     Dates: start: 20190325

REACTIONS (4)
  - Road traffic accident [Unknown]
  - Device kink [Not Recovered/Not Resolved]
  - Device placement issue [Not Recovered/Not Resolved]
  - Injury [Unknown]

NARRATIVE: CASE EVENT DATE: 20201204
